FAERS Safety Report 15473560 (Version 1)
Quarter: 2018Q4

REPORT INFORMATION
  Report Type: Spontaneous
  Country: US (occurrence: US)
  Receive Date: 20181008
  Receipt Date: 20181008
  Transmission Date: 20190205
  Serious: No
  Sender: FDA-Public Use
  Company Number: US-BAUSCH-BL-2018-026584

PATIENT
  Age: 58 Year
  Sex: Female
  Weight: 80.81 kg

DRUGS (1)
  1. NEOMYCIN AND POLYMYXIN B SULFATES AND HYDROCORTISONE [Suspect]
     Active Substance: HYDROCORTISONE\NEOMYCIN SULFATE\POLYMYXIN B SULFATE
     Indication: EAR DISORDER
     Route: 001
     Dates: start: 20180918, end: 20180921

REACTIONS (2)
  - Ear discomfort [Recovering/Resolving]
  - Ear pruritus [Recovering/Resolving]

NARRATIVE: CASE EVENT DATE: 20180921
